FAERS Safety Report 6810654-8 (Version None)
Quarter: 2010Q2

REPORT INFORMATION
  Report Type: 
  Country: None (occurrence: None)
  Receive Date: 20100629
  Receipt Date: 20100629
  Transmission Date: 20101027
  Serious: Yes (Life-Threatening, Other)
  Sender: FDA-Public Use
  Company Number: None

PATIENT
  Age: 51 Year
  Sex: Male
  Weight: 86.1834 kg

DRUGS (2)
  1. CYMBALTA [Suspect]
     Indication: FIBROMYALGIA
     Dosage: 1 CAPSULE 1 TIME PO  (1 TIME USAGE)
     Route: 048
     Dates: start: 20100627, end: 20100627
  2. CYMBALTA [Suspect]

REACTIONS (14)
  - CONFUSIONAL STATE [None]
  - DYSPHAGIA [None]
  - EXOPHTHALMOS [None]
  - FEAR [None]
  - FEELING ABNORMAL [None]
  - HEADACHE [None]
  - HEART RATE INCREASED [None]
  - HYPERTENSION [None]
  - LACRIMATION INCREASED [None]
  - NERVOUS SYSTEM DISORDER [None]
  - RESPIRATORY DISORDER [None]
  - THROAT TIGHTNESS [None]
  - TREMOR [None]
  - WEIGHT DECREASED [None]
